FAERS Safety Report 16824573 (Version 1)
Quarter: 2019Q3

REPORT INFORMATION
  Report Type: Spontaneous
  Country: US (occurrence: US)
  Receive Date: 20190918
  Receipt Date: 20190918
  Transmission Date: 20191005
  Serious: Yes (Other)
  Sender: FDA-Public Use
  Company Number: US-JNJFOC-20190915938

PATIENT
  Sex: Male
  Weight: 81.72 kg

DRUGS (2)
  1. XARELTO [Suspect]
     Active Substance: RIVAROXABAN
     Indication: CEREBROVASCULAR ACCIDENT PROPHYLAXIS
  2. XARELTO [Suspect]
     Active Substance: RIVAROXABAN
     Indication: ATRIAL FIBRILLATION
     Dosage: UDI NO: 100008378858
     Route: 048
     Dates: start: 2014

REACTIONS (8)
  - Dental prosthesis user [Unknown]
  - Dental restoration failure [Not Recovered/Not Resolved]
  - Immobile [Recovered/Resolved]
  - Blood urine present [Unknown]
  - Product outer packaging issue [Unknown]
  - Haemorrhage [Unknown]
  - Ankle fracture [Unknown]
  - Abnormal weight gain [Not Recovered/Not Resolved]

NARRATIVE: CASE EVENT DATE: 2014
